FAERS Safety Report 5637773-6 (Version None)
Quarter: 2008Q1

REPORT INFORMATION
  Report Type: 
  Country: None (occurrence: None)
  Receive Date: 20080219
  Receipt Date: 20080212
  Transmission Date: 20080703
  Serious: Yes (Other)
  Sender: FDA-Public Use
  Company Number: OPER20080021

PATIENT
  Age: 42 Year
  Sex: Male
  Weight: 78.9259 kg

DRUGS (7)
  1. OPANA ER [Suspect]
     Indication: ARTHRALGIA
     Dosage: 10 MG, 1 TAB TID, PER ORAL; 3 IN 1 D
     Route: 048
     Dates: start: 20071122, end: 20080211
  2. OPANA ER [Suspect]
     Indication: ARTHRALGIA
     Dosage: 10 MG, 1 TAB TID, PER ORAL; 3 IN 1 D
     Route: 048
     Dates: start: 20071122, end: 20080211
  3. FENTANYL TRANSDERMAL SYSTEM [Concomitant]
  4. CYMBALTA [Concomitant]
  5. LIPITOR [Concomitant]
  6. ZOLOFT [Concomitant]
  7. PREVACID [Concomitant]

REACTIONS (3)
  - DRUG DISPENSING ERROR [None]
  - FATIGUE [None]
  - FEELING ABNORMAL [None]
